FAERS Safety Report 21678109 (Version 6)
Quarter: 2024Q4

REPORT INFORMATION
  Report Type: Spontaneous
  Country: US (occurrence: US)
  Receive Date: 20221203
  Receipt Date: 20241017
  Transmission Date: 20250114
  Serious: No
  Sender: NOVARTIS
  Company Number: US-002147023-NVSC2022US281449

PATIENT
  Sex: Male
  Weight: 88.9 kg

DRUGS (4)
  1. PLUVICTO [Suspect]
     Active Substance: LUTETIUM LU-177 VIPIVOTIDE TETRAXETAN
     Indication: Hormone-refractory prostate cancer
     Dosage: 200 MCI, EVERY 6 WEEKS
     Route: 042
     Dates: start: 20220617, end: 20221019
  2. PLUVICTO [Suspect]
     Active Substance: LUTETIUM LU-177 VIPIVOTIDE TETRAXETAN
     Dosage: 200 MCI, EVERY 6 WEEKS
     Route: 042
     Dates: start: 20220617, end: 20221019
  3. PLUVICTO [Suspect]
     Active Substance: LUTETIUM LU-177 VIPIVOTIDE TETRAXETAN
     Dosage: 200 MCI, EVERY 6 WEEKS
     Route: 042
     Dates: start: 20220617, end: 20221019
  4. PLUVICTO [Suspect]
     Active Substance: LUTETIUM LU-177 VIPIVOTIDE TETRAXETAN
     Dosage: 200 MCI, EVERY 6 WEEKS
     Route: 042
     Dates: start: 20220617, end: 20221019

REACTIONS (2)
  - Ill-defined disorder [Unknown]
  - Prostatic specific antigen increased [Unknown]
